FAERS Safety Report 17467457 (Version 2)
Quarter: 2020Q2

REPORT INFORMATION
  Report Type: Spontaneous
  Country: US (occurrence: US)
  Receive Date: 20200227
  Receipt Date: 20200513
  Transmission Date: 20200713
  Serious: No
  Sender: FDA-Public Use
  Company Number: US-PFIZER INC-2020087448

PATIENT
  Age: 68 Year
  Sex: Female

DRUGS (1)
  1. XELJANZ [Suspect]
     Active Substance: TOFACITINIB CITRATE
     Indication: RHEUMATOID ARTHRITIS
     Dosage: 25 MG, 2X/DAY (TAKE 5 TABLET)
     Route: 048

REACTIONS (3)
  - Prescribed overdose [Unknown]
  - Urinary tract infection [Unknown]
  - Influenza [Unknown]

NARRATIVE: CASE EVENT DATE: 201912
